FAERS Safety Report 6243445-X (Version None)
Quarter: 2009Q2

REPORT INFORMATION
  Report Type: 
  Country: None (occurrence: None)
  Receive Date: 20090624
  Receipt Date: 20090617
  Transmission Date: 20091009
  Serious: Yes (Death, Hospitalization, Other)
  Sender: FDA-Public Use
  Company Number: US-BAXTER-2009BH010292

PATIENT
  Sex: Male

DRUGS (17)
  1. HEPARIN SODIUM INJECTION [Suspect]
     Indication: ARTERIOGRAM CORONARY
     Route: 042
     Dates: start: 20070912, end: 20070912
  2. HEPARIN SODIUM INJECTION [Suspect]
     Indication: CORONARY ANGIOPLASTY
     Route: 042
     Dates: start: 20070912, end: 20070912
  3. HEPARIN SODIUM INJECTION [Suspect]
     Indication: STENT PLACEMENT
     Route: 042
     Dates: start: 20070912, end: 20070912
  4. HEPARIN SODIUM INJECTION [Suspect]
     Route: 042
     Dates: start: 20070912, end: 20070912
  5. HEPARIN SODIUM INJECTION [Suspect]
     Route: 042
     Dates: start: 20070912, end: 20070912
  6. HEPARIN SODIUM INJECTION [Suspect]
     Route: 042
     Dates: start: 20070912, end: 20070912
  7. HEPARIN SODIUM INJECTION [Suspect]
     Route: 042
     Dates: start: 20070913, end: 20070913
  8. HEPARIN SODIUM INJECTION [Suspect]
     Route: 042
     Dates: start: 20070913, end: 20070913
  9. HEPARIN SODIUM INJECTION [Suspect]
     Route: 042
     Dates: start: 20070913, end: 20070913
  10. HEPARIN SODIUM INJECTION [Suspect]
     Route: 041
     Dates: start: 20070915, end: 20070915
  11. HEPARIN SODIUM INJECTION [Suspect]
     Route: 041
     Dates: start: 20070915, end: 20070915
  12. HEPARIN SODIUM INJECTION [Suspect]
     Route: 041
     Dates: start: 20070915, end: 20070915
  13. HEPARIN SODIUM 1,000 UNITS AND SODIUM CHLORIDE 0.9% [Suspect]
     Indication: PROPHYLAXIS
     Route: 041
     Dates: start: 20070901, end: 20070901
  14. HEPARIN SODIUM 1,000 UNITS AND SODIUM CHLORIDE 0.9% [Suspect]
     Indication: PERITONEAL DIALYSIS
     Route: 041
     Dates: start: 20070901, end: 20070901
  15. HEPARIN SODIUM INJECTION [Suspect]
     Indication: PROPHYLAXIS
     Route: 041
     Dates: start: 20070901
  16. HEPARIN SODIUM INJECTION [Suspect]
     Indication: PERITONEAL DIALYSIS
     Route: 041
     Dates: start: 20070901
  17. SODIUM CHLORIDE 0.9% IN PLASTIC CONTAINER [Concomitant]
     Indication: ARTERIOGRAM CORONARY
     Route: 041
     Dates: start: 20070912, end: 20070913

REACTIONS (16)
  - ANAPHYLACTOID REACTION [None]
  - CHEST DISCOMFORT [None]
  - DEATH [None]
  - DYSPNOEA [None]
  - FLUSHING [None]
  - HYPERSENSITIVITY [None]
  - HYPOAESTHESIA [None]
  - HYPOAESTHESIA ORAL [None]
  - HYPOTENSION [None]
  - HYPOXIA [None]
  - LIP SWELLING [None]
  - ORGAN FAILURE [None]
  - PARAESTHESIA [None]
  - RASH [None]
  - RENAL FAILURE ACUTE [None]
  - RESPIRATORY DISTRESS [None]
